FAERS Safety Report 7418106-1 (Version None)
Quarter: 2011Q2

REPORT INFORMATION
  Report Type: 
  Country: None (occurrence: None)
  Receive Date: 20110407
  Receipt Date: 20110323
  Transmission Date: 20111010
  Serious: Yes (Other)
  Sender: FDA-Public Use
  Company Number: 1000017936

PATIENT
  Age: 40 Year
  Sex: Female

DRUGS (3)
  1. ESCITALOPRAM OXALATE [Suspect]
     Indication: DEPRESSION
     Dosage: 20 MG (20 MG,1 IN 1 D),ORAL ; 10 MG (10 MG,1 IN 1 D),ORAL
     Route: 048
     Dates: start: 20100601
  2. TRAZODONE (TRAZODONE) (TRAZODONE) [Concomitant]
  3. METOPROLOL SUCCINATE [Concomitant]

REACTIONS (3)
  - ELECTROCARDIOGRAM QT PROLONGED [None]
  - TACHYCARDIA [None]
  - CARDIAC DISORDER [None]
